FAERS Safety Report 4898311-9 (Version None)
Quarter: 2006Q1

REPORT INFORMATION
  Report Type: 
  Country: None (occurrence: None)
  Receive Date: 20060127
  Receipt Date: 20060123
  Transmission Date: 20060701
  Serious: Yes (Other)
  Sender: FDA-Public Use
  Company Number: 2006010712

PATIENT
  Age: 10 Year
  Sex: Female
  Weight: 30.391 kg

DRUGS (1)
  1. CHILDREN'S PEDIACARE NIGHTREST COUGH AND COLD (PSEUDOEPHEDRINE, DEXTRO [Suspect]
     Indication: NASOPHARYNGITIS
     Dosage: 2 TEASPOONS ONCE, ORAL
     Route: 048
     Dates: start: 20060101, end: 20060101

REACTIONS (2)
  - HALLUCINATION [None]
  - SLEEP DISORDER [None]
